FAERS Safety Report 8044087-6 (Version None)
Quarter: 2012Q1

REPORT INFORMATION
  Report Type: 
  Country: None (occurrence: None)
  Receive Date: 20120113
  Receipt Date: 20120110
  Transmission Date: 20120608
  Serious: Yes (Other)
  Sender: FDA-Public Use
  Company Number: AU-JNJFOC-20120103744

PATIENT
  Sex: Female

DRUGS (7)
  1. STELARA [Suspect]
     Route: 058
     Dates: start: 20100513
  2. STELARA [Suspect]
     Route: 058
     Dates: start: 20110513
  3. STELARA [Suspect]
     Indication: PSORIASIS
     Route: 058
     Dates: start: 20101125
  4. STELARA [Suspect]
     Route: 058
     Dates: start: 20111028
  5. STELARA [Suspect]
     Route: 058
     Dates: start: 20100902
  6. STELARA [Suspect]
     Route: 058
     Dates: start: 20110218
  7. STELARA [Suspect]
     Route: 058
     Dates: start: 20100610

REACTIONS (2)
  - ANKLE FRACTURE [None]
  - PSORIASIS [None]
